FAERS Safety Report 4387119-9 (Version None)
Quarter: 2004Q2

REPORT INFORMATION
  Report Type: 
  Country: None (occurrence: None)
  Receive Date: 20040630
  Receipt Date: 20040310
  Transmission Date: 20050107
  Serious: No
  Sender: FDA-Public Use
  Company Number: US-GLAXOSMITHKLINE-A0502184A

PATIENT
  Age: 35 Year
  Sex: Female

DRUGS (8)
  1. ADVAIR HFA [Suspect]
     Indication: ASTHMA
     Dosage: 1PUFF TWICE PER DAY
     Route: 055
     Dates: start: 20040306
  2. ALBUTEROL [Concomitant]
  3. PAXIL [Concomitant]
  4. ORTHO EVRA [Concomitant]
  5. AVELOX [Concomitant]
  6. NASONEX [Concomitant]
  7. ZYRTEC-D 12 HOUR [Concomitant]
  8. SINGULAIR [Concomitant]

REACTIONS (2)
  - MEMORY IMPAIRMENT [None]
  - TREMOR [None]
